FAERS Safety Report 9463878 (Version 1)
Quarter: 2013Q3

REPORT INFORMATION
  Report Type: Report from Study
  Country: CA (occurrence: CA)
  Receive Date: 20130819
  Receipt Date: 20130819
  Transmission Date: 20140515
  Serious: Yes (Hospitalization)
  Sender: FDA-Public Use
  Company Number: CA-JNJFOC-20130805295

PATIENT
  Age: 66 Year
  Sex: Male
  Weight: 82 kg

DRUGS (8)
  1. REMICADE [Suspect]
     Indication: CROHN^S DISEASE
     Route: 042
     Dates: start: 2007
  2. PRADAXA [Concomitant]
     Route: 065
  3. CIPRO [Concomitant]
     Route: 065
  4. FLAGYL [Concomitant]
     Route: 065
  5. AMIODARONE [Concomitant]
     Route: 065
  6. TYLENOL [Concomitant]
     Indication: PREMEDICATION
     Route: 048
  7. BENADRYL [Concomitant]
     Indication: PREMEDICATION
     Route: 042
  8. SOLUCORTEF [Concomitant]
     Indication: PREMEDICATION
     Route: 042

REACTIONS (2)
  - Atrial fibrillation [Recovered/Resolved]
  - Atrial tachycardia [Recovered/Resolved]
